FAERS Safety Report 17803967 (Version 2)
Quarter: 2020Q2

REPORT INFORMATION
  Report Type: Spontaneous
  Country: US (occurrence: US)
  Receive Date: 20200519
  Receipt Date: 20200611
  Transmission Date: 20200714
  Serious: No
  Sender: FDA-Public Use
  Company Number: US-ASTRAZENECA-2020SE62333

PATIENT
  Age: 61 Year
  Sex: Male
  Weight: 90.7 kg

DRUGS (6)
  1. NAPROXEN. [Concomitant]
     Active Substance: NAPROXEN
     Indication: INFLAMMATION
     Route: 048
  2. FLONASE [Concomitant]
     Active Substance: FLUTICASONE PROPIONATE
     Indication: HYPERSENSITIVITY
     Dosage: 1 SPRAY TO EACH NOSTRIL
     Route: 045
  3. BYDUREON BCISE [Suspect]
     Active Substance: EXENATIDE
     Indication: GLUCOSE TOLERANCE IMPAIRED
     Route: 058
     Dates: start: 2019
  4. TAMSULOSIN [Concomitant]
     Active Substance: TAMSULOSIN
     Indication: RENAL DISORDER
     Route: 048
     Dates: start: 201911
  5. METOPROLOL SUCC ER [Concomitant]
     Active Substance: METOPROLOL SUCCINATE
     Indication: HYPERTENSION
     Route: 048
  6. VALIUM [Concomitant]
     Active Substance: DIAZEPAM
     Indication: PARKINSON^S DISEASE
     Route: 048

REACTIONS (7)
  - Injection site haemorrhage [Unknown]
  - Needle issue [Unknown]
  - Blood glucose increased [Recovered/Resolved]
  - Wrong technique in device usage process [Unknown]
  - Intentional device misuse [Not Recovered/Not Resolved]
  - Injection site mass [Unknown]
  - Incorrect dose administered by device [Unknown]

NARRATIVE: CASE EVENT DATE: 2019
